FAERS Safety Report 6313636-8 (Version None)
Quarter: 2009Q3

REPORT INFORMATION
  Report Type: 
  Country: None (occurrence: None)
  Receive Date: 20090814
  Receipt Date: 20090620
  Transmission Date: 20100115
  Serious: Yes (Hospitalization)
  Sender: FDA-Public Use
  Company Number: 2007EU000252

PATIENT
  Age: 72 Year
  Sex: Male

DRUGS (32)
  1. TACROLIMUS [Suspect]
     Indication: RENAL TRANSPLANT
     Dosage: 1 MG, BID, ORAL ; 0.5 MG, UID/QD, ORAL
     Route: 048
     Dates: start: 20040303, end: 20041020
  2. TACROLIMUS [Suspect]
     Indication: RENAL TRANSPLANT
     Dosage: 1 MG, BID, ORAL ; 0.5 MG, UID/QD, ORAL
     Route: 048
     Dates: start: 20031007
  3. DACLIZUMAB(DACLIZUMAB) [Suspect]
     Indication: RENAL TRANSPLANT
     Dosage: 150 MG, TOTAL DOSE, IV NOS ; 75 MG, CYCLIC, IV NOS
     Route: 042
     Dates: start: 20031007, end: 20031007
  4. DACLIZUMAB(DACLIZUMAB) [Suspect]
     Indication: RENAL TRANSPLANT
     Dosage: 150 MG, TOTAL DOSE, IV NOS ; 75 MG, CYCLIC, IV NOS
     Route: 042
     Dates: start: 20031021
  5. MYCOPHENOLATE MOFETIL [Suspect]
     Indication: RENAL TRANSPLANT
     Dosage: 1 G, BID, ORAL ; 250 MG, BID, ORAL
     Route: 048
     Dates: start: 20031007, end: 20050517
  6. PREDNISOLONE [Suspect]
     Indication: RENAL TRANSPLANT
     Dosage: 50 MG, UID/QD, ORAL
     Route: 048
     Dates: start: 20031007, end: 20050805
  7. PREDNISOLONE [Suspect]
     Dosage: 500 MG, UID/QD, IV NOS
     Route: 042
     Dates: start: 20031007, end: 20031012
  8. DILTIAZEM [Concomitant]
  9. ALLOPURINOL [Concomitant]
  10. UNAT (TORASEMIDE SODIUM) [Concomitant]
  11. ALDACTONE [Concomitant]
  12. RAMIPRIL [Concomitant]
  13. ACTRAPID (INSULIN HUMAN) [Concomitant]
  14. PROTAPHANE (ISOPHANE INSULIN) [Concomitant]
  15. ENOXAPARIN SODIUM [Concomitant]
  16. BISOPROLOL FUMARATE [Concomitant]
  17. CALCIUMCARBONAT [Concomitant]
  18. CANDESARTAN CILEXETIL [Concomitant]
  19. COTRIMOXAZOL (SULFMETHOXAZOLE, TRIMETHOPRIM) [Concomitant]
  20. ENOXAPARIN SODIUM [Concomitant]
  21. FLUCONAZOLE [Concomitant]
  22. KALIUMCHLORID (POTASSIUM CHLORIDE) [Concomitant]
  23. POTASSIUM CITRATE [Concomitant]
  24. POTASSIUM PHOSPHATE DIBASIC (POTASSIUM PHOSPHATE DIBASIC) [Concomitant]
  25. MAGNESIUM PHOSPHATE (MAGNESIUM PHOSPHATE) [Concomitant]
  26. MINOXIDIL [Concomitant]
  27. NATRIUM HYDROGENCARBONATE (SODIUM BICARBONATE) [Concomitant]
  28. PANTOPRAZOLE SODIUM [Concomitant]
  29. THIAMAZOL (THIAMAZOLE) [Concomitant]
  30. TORSEMIDE [Concomitant]
  31. URAPIDIL (URAPIDIL) [Concomitant]
  32. XIPAMID (XIPAMIDE) [Concomitant]

REACTIONS (1)
  - LEIOMYOSARCOMA [None]
